FAERS Safety Report 9494925 (Version 1)
Quarter: 2013Q3

REPORT INFORMATION
  Report Type: Spontaneous
  Country: JP (occurrence: JP)
  Receive Date: 20130903
  Receipt Date: 20130903
  Transmission Date: 20140515
  Serious: Yes (Hospitalization, Other)
  Sender: FDA-Public Use
  Company Number: JP-009507513-1309JPN000325

PATIENT
  Sex: Female
  Weight: 30 kg

DRUGS (6)
  1. FOSAMAC TABLETS 35MG [Suspect]
     Dosage: DAILY DOSAGE UNKNOWN
     Route: 048
  2. VASOLAN [Suspect]
     Dosage: DAILY DOSAGE UNKNOWN; TAKING IN THE MORNING
     Route: 065
     Dates: start: 2013
  3. SELBEX [Suspect]
     Dosage: DAILY DOSAGE UNKNOWN
     Route: 065
     Dates: start: 2013
  4. WARFARIN POTASSIUM [Suspect]
     Dosage: DAILY DOSAGE UNKNOWN; TAKING IN THE MORNING
     Route: 065
  5. ARTIST [Suspect]
     Dosage: DAILY DOSAGE UNKNOWN
     Route: 065
  6. CALCIUM (UNSPECIFIED) [Concomitant]
     Dosage: DAILY DOSAGE UNKNOWN
     Route: 065

REACTIONS (5)
  - Compression fracture [Unknown]
  - Atrial fibrillation [Unknown]
  - Ovarian disorder [Unknown]
  - Muscular weakness [Unknown]
  - Abdominal discomfort [Unknown]
